FAERS Safety Report 24105571 (Version 1)
Quarter: 2024Q3

REPORT INFORMATION
  Report Type: Spontaneous
  Country: US (occurrence: US)
  Receive Date: 20240717
  Receipt Date: 20240717
  Transmission Date: 20241017
  Serious: No
  Sender: SANOFI AVENTIS
  Company Number: US-SA-SAC20240711001277

PATIENT
  Age: 57 Year
  Sex: Female

DRUGS (2)
  1. THYROGEN [Suspect]
     Active Substance: THYROTROPIN ALFA
     Indication: Thyroid cancer
     Dosage: 0.9 MG, QD
     Route: 030
     Dates: start: 202404
  2. WAKIX [Suspect]
     Active Substance: PITOLISANT HYDROCHLORIDE
     Dosage: UNK
     Route: 065

REACTIONS (5)
  - Sleep disorder due to a general medical condition [Unknown]
  - Myalgia [Unknown]
  - Arthralgia [Unknown]
  - Urticaria [Recovered/Resolved]
  - Rash pruritic [Unknown]

NARRATIVE: CASE EVENT DATE: 20240101
